FAERS Safety Report 8814397 (Version 1)
Quarter: 2012Q4

REPORT INFORMATION
  Report Type: 
  Country: DE (occurrence: None)
  Receive Date: 20120925
  Receipt Date: 20120925
  Transmission Date: 20130627
  Serious: Yes (Death)
  Sender: FDA-Public Use
  Company Number: 2012TP000394

PATIENT
  Age: 22 Year
  Sex: Female

DRUGS (2)
  1. LIDOCAINE [Suspect]
  2. TRAMADOL HYDROCHLORIDE (TRAMADOL HYDROCHLORIDE) [Suspect]

REACTIONS (2)
  - Toxicity to various agents [None]
  - Overdose [None]
